FAERS Safety Report 20455598 (Version 4)
Quarter: 2022Q2

REPORT INFORMATION
  Report Type: Spontaneous
  Country: US (occurrence: US)
  Receive Date: 20220210
  Receipt Date: 20220609
  Transmission Date: 20220721
  Serious: No
  Sender: FDA-Public Use
  Company Number: US-KARYOPHARM-2022KPT000067

PATIENT

DRUGS (15)
  1. XPOVIO [Suspect]
     Active Substance: SELINEXOR
     Indication: Plasma cell myeloma
     Dosage: 80 MG, WEEKLY
     Route: 048
     Dates: start: 20220106
  2. BASAGLAR [Concomitant]
     Active Substance: INSULIN GLARGINE
  3. INCRUSE ELLIPTA [Concomitant]
     Active Substance: UMECLIDINIUM BROMIDE
  4. SERTRALINE [Concomitant]
     Active Substance: SERTRALINE HYDROCHLORIDE
  5. ACYCLOVIR [Concomitant]
     Active Substance: ACYCLOVIR
  6. VALACYCLOVIR [Concomitant]
     Active Substance: VALACYCLOVIR HYDROCHLORIDE
  7. DILTIAZEM [Concomitant]
     Active Substance: DILTIAZEM
  8. DEXAMETHASONE [Concomitant]
     Active Substance: DEXAMETHASONE
  9. VELCADE [Concomitant]
     Active Substance: BORTEZOMIB
  10. ALENDRONATE [Concomitant]
     Active Substance: ALENDRONATE SODIUM
  11. FUROSEMIDE [Concomitant]
     Active Substance: FUROSEMIDE
  12. LANTUS [Concomitant]
     Active Substance: INSULIN GLARGINE
  13. ONDANSETRON [Concomitant]
     Active Substance: ONDANSETRON
  14. SPIRONOLACTONE [Concomitant]
     Active Substance: SPIRONOLACTONE
  15. ZOLPIDEM [Concomitant]
     Active Substance: ZOLPIDEM TARTRATE

REACTIONS (7)
  - Paranasal sinus discomfort [Unknown]
  - Nasopharyngitis [Unknown]
  - Back pain [Recovering/Resolving]
  - Diarrhoea [Recovering/Resolving]
  - Weight decreased [Unknown]
  - Fatigue [Not Recovered/Not Resolved]
  - Decreased appetite [Unknown]

NARRATIVE: CASE EVENT DATE: 20220101
